FAERS Safety Report 10705119 (Version 2)
Quarter: 2015Q1

REPORT INFORMATION
  Report Type: Spontaneous
  Country: KR (occurrence: KR)
  Receive Date: 20150112
  Receipt Date: 20150330
  Transmission Date: 20150721
  Serious: Yes (Death)
  Sender: FDA-Public Use
  Company Number: KR-OTSUKA-US-2015-10057

PATIENT

DRUGS (18)
  1. SEPTRIN [Concomitant]
     Active Substance: SULFAMETHOXAZOLE\TRIMETHOPRIM
     Indication: ANTIBIOTIC PROPHYLAXIS
     Dosage: UNK, BID
     Route: 048
     Dates: start: 20141125, end: 20141220
  2. CRAVIT [Concomitant]
     Active Substance: LEVOFLOXACIN
     Indication: ANTIBIOTIC PROPHYLAXIS
     Dosage: UNK
     Route: 048
     Dates: start: 20141125, end: 20141214
  3. FLUDEX [Concomitant]
     Active Substance: INDAPAMIDE
     Indication: CHRONIC KIDNEY DISEASE
     Dosage: UNK, TID
     Route: 048
     Dates: end: 20141220
  4. NOXAFIL [Concomitant]
     Active Substance: POSACONAZOLE
     Indication: ANTIFUNGAL PROPHYLAXIS
     Dosage: 5 ML MILLILITRE(S), TID
     Route: 048
     Dates: start: 20141125, end: 20141220
  5. OLMESARTAN MEDOXOMIL. [Concomitant]
     Active Substance: OLMESARTAN MEDOXOMIL
     Indication: HYPERTENSION
     Dosage: 40 MG MILLIGRAM(S), QD
     Route: 048
     Dates: end: 20141217
  6. HERBEN [Concomitant]
     Indication: ANGINA PECTORIS
     Dosage: UNK, QD
     Route: 048
     Dates: end: 20141220
  7. DACOGEN [Suspect]
     Active Substance: DECITABINE
     Dosage: 20 MG/M2, 1 IN 1 DAY
     Route: 042
     Dates: start: 20141129, end: 20141129
  8. RENAGEL [Concomitant]
     Active Substance: SEVELAMER HYDROCHLORIDE
     Indication: CHRONIC KIDNEY DISEASE
     Dosage: UNK, TID
     Route: 048
     Dates: start: 20141110, end: 20141220
  9. DACOGEN [Suspect]
     Active Substance: DECITABINE
     Dosage: 20 MG/M2, 1 IN 1 DAY
     Route: 042
     Dates: start: 20141127, end: 20141127
  10. LASIX [Concomitant]
     Active Substance: FUROSEMIDE
     Indication: CHRONIC KIDNEY DISEASE
     Dosage: UNK, TID
     Route: 048
     Dates: end: 20141220
  11. VANCO [Concomitant]
     Active Substance: VANCOMYCIN
     Indication: FEBRILE NEUTROPENIA
     Dosage: UNK, QD
     Route: 042
     Dates: start: 20141216, end: 20141219
  12. DACOGEN [Suspect]
     Active Substance: DECITABINE
     Dosage: 20 MG/M2, 1 IN 1 DAY
     Route: 042
     Dates: start: 20141128, end: 20141128
  13. VASTINAN [Concomitant]
     Indication: ANGINA PECTORIS
     Dosage: UNK, BID
     Route: 048
     Dates: end: 20141220
  14. HANCEROM [Concomitant]
     Indication: FEBRILE NEUTROPENIA
     Dosage: UNK, QD
     Route: 042
     Dates: start: 20141213, end: 20141220
  15. DACOGEN [Suspect]
     Active Substance: DECITABINE
     Dosage: 20 MG/M2, 1 IN 1 DAY
     Route: 042
     Dates: start: 20141126, end: 20141126
  16. DACOGEN [Suspect]
     Active Substance: DECITABINE
     Indication: ACUTE MYELOID LEUKAEMIA
     Dosage: 20 MG/M2, 1 IN 1 DAY
     Route: 042
     Dates: start: 20141125, end: 20141125
  17. AMLODIPINE [Concomitant]
     Active Substance: AMLODIPINE BESYLATE
     Indication: HYPERTENSION
     Dosage: UNK, ABOVE 1 MONTH AGO
     Route: 048
     Dates: end: 20141217
  18. VACRAX [Concomitant]
     Indication: ANTIVIRAL PROPHYLAXIS
     Dosage: UNK, BID
     Route: 048
     Dates: start: 20141125, end: 20141220

REACTIONS (2)
  - Acute myeloid leukaemia [Fatal]
  - Febrile neutropenia [Recovered/Resolved]

NARRATIVE: CASE EVENT DATE: 20141215
